FAERS Safety Report 24197828 (Version 2)
Quarter: 2024Q3

REPORT INFORMATION
  Report Type: Report from Study
  Country: RO (occurrence: RO)
  Receive Date: 20240811
  Receipt Date: 20240828
  Transmission Date: 20241016
  Serious: Yes (Hospitalization, Disabling)
  Sender: ABBVIE
  Company Number: RO-ABBVIE-5873150

PATIENT
  Age: 62 Year
  Sex: Male

DRUGS (2)
  1. CARBIDOPA\LEVODOPA [Suspect]
     Active Substance: CARBIDOPA\LEVODOPA
     Indication: Parkinson^s disease
     Dosage: DM=11.00 DC=7.60 ED=4.00 NRED=0; DMN=3.00 DCN=4.00 EDN=4.00 NREDN=0
     Route: 050
     Dates: start: 20120723
  2. CARBIDOPA\LEVODOPA [Suspect]
     Active Substance: CARBIDOPA\LEVODOPA

REACTIONS (7)
  - Dislocation of vertebra [Recovering/Resolving]
  - Fall [Unknown]
  - Iron deficiency anaemia [Recovering/Resolving]
  - Lumbar vertebral fracture [Recovering/Resolving]
  - Back pain [Not Recovered/Not Resolved]
  - Lumbar spinal stenosis [Not Recovered/Not Resolved]
  - Immobile [Not Recovered/Not Resolved]

NARRATIVE: CASE EVENT DATE: 20240805
